FAERS Safety Report 6644949-8 (Version None)
Quarter: 2010Q1

REPORT INFORMATION
  Report Type: 
  Country: None (occurrence: None)
  Receive Date: 20100322
  Receipt Date: 20100310
  Transmission Date: 20100710
  Serious: Yes (Other)
  Sender: FDA-Public Use
  Company Number: PHHY2010JP14669

PATIENT
  Age: 57 Year
  Sex: Female

DRUGS (4)
  1. ZOMETA [Suspect]
     Indication: METASTASES TO BONE
     Route: 042
  2. AREDIA [Suspect]
     Indication: METASTASES TO BONE
     Route: 042
  3. TAMOXIFEN CITRATE [Concomitant]
     Indication: BREAST CANCER
  4. ANASTROZOLE [Concomitant]
     Indication: BREAST CANCER

REACTIONS (1)
  - FEMUR FRACTURE [None]
